FAERS Safety Report 16123755 (Version 12)
Quarter: 2021Q2

REPORT INFORMATION
  Report Type: Report from Study
  Country: GB (occurrence: GB)
  Receive Date: 20190327
  Receipt Date: 20210507
  Transmission Date: 20210716
  Serious: Yes (Other)
  Sender: FDA-Public Use
  Company Number: GB-MYLANLABS-2019M1026994

PATIENT
  Age: 51 Year
  Sex: Female

DRUGS (48)
  1. TRASTUZUMAB. [Suspect]
     Active Substance: TRASTUZUMAB
     Dosage: 378 MILLIGRAM, Q3W
     Route: 042
     Dates: start: 20160627, end: 20160627
  2. TRASTUZUMAB. [Suspect]
     Active Substance: TRASTUZUMAB
     Dosage: 525 MILLIGRAM (LOADING DOSE)
     Route: 042
     Dates: start: 20160510, end: 20160510
  3. SEVREDOL [Concomitant]
     Active Substance: MORPHINE
     Dosage: UNK UNK, QD
     Route: 065
  4. PREGABALIN. [Concomitant]
     Active Substance: PREGABALIN
     Indication: PRODUCT USED FOR UNKNOWN INDICATION
     Dosage: UNK
     Route: 065
  5. ZOMORPH [Concomitant]
     Active Substance: MORPHINE SULFATE
     Dosage: 60 MILLIGRAM, BID
     Route: 048
  6. IRON [Concomitant]
     Active Substance: IRON
     Dosage: UNK
     Route: 065
     Dates: start: 20190612
  7. ANASTROZOLE. [Suspect]
     Active Substance: ANASTROZOLE
     Indication: BREAST CANCER METASTATIC
     Dosage: 1 MILLIGRAM, QD
     Route: 048
     Dates: start: 20170127
  8. TRASTUZUMAB. [Suspect]
     Active Substance: TRASTUZUMAB
     Dosage: 346.5 MILLIGRAM, Q3W
     Route: 042
     Dates: start: 20170517, end: 20170703
  9. NERATINIB [Suspect]
     Active Substance: NERATINIB
     Indication: BREAST CANCER
     Dosage: 336 MILLIGRAM, Q3W
     Route: 042
     Dates: start: 20180925, end: 20180925
  10. ENOXAPARIN [Concomitant]
     Active Substance: ENOXAPARIN
     Indication: PRODUCT USED FOR UNKNOWN INDICATION
     Dosage: 40 MILLIGRAM
     Route: 058
     Dates: start: 20161101, end: 20161101
  11. ZOMORPH [Concomitant]
     Active Substance: MORPHINE SULFATE
     Dosage: 120 MILLIGRAM, QD
     Route: 048
  12. DOCETAXEL. [Suspect]
     Active Substance: DOCETAXEL
     Indication: HER2 POSITIVE BREAST CANCER
     Dosage: 120 MILLIGRAM, Q3W
     Route: 042
     Dates: start: 20160808, end: 20160830
  13. PERTUZUMAB. [Suspect]
     Active Substance: PERTUZUMAB
     Indication: HER2 POSITIVE BREAST CANCER
     Dosage: 840 MILLIGRAM, Q3W (LOADING DOSE)
     Route: 042
     Dates: start: 20160510, end: 20160510
  14. NERATINIB [Suspect]
     Active Substance: NERATINIB
     Dosage: 378 MILLIGRAM, Q3W
     Route: 042
     Dates: start: 20201013
  15. PARACETAMOL [Concomitant]
     Active Substance: ACETAMINOPHEN
     Indication: PRODUCT USED FOR UNKNOWN INDICATION
     Dosage: UNK
     Route: 048
  16. SEVREDOL [Concomitant]
     Active Substance: MORPHINE
     Dosage: 10 MILLIGRAM, QD
     Route: 048
     Dates: start: 20161101, end: 20161102
  17. SEVREDOL [Concomitant]
     Active Substance: MORPHINE
     Dosage: 20 MILLIGRAM, QD
     Route: 048
     Dates: start: 20161101, end: 20161102
  18. SEVREDOL [Concomitant]
     Active Substance: MORPHINE
     Dosage: 30 MILLIGRAM, QD
     Route: 065
  19. ZOMORPH [Concomitant]
     Active Substance: MORPHINE SULFATE
     Indication: PRODUCT USED FOR UNKNOWN INDICATION
     Dosage: 60 MILLIGRAM, QD
     Route: 048
  20. RAMIPRIL. [Concomitant]
     Active Substance: RAMIPRIL
     Indication: EJECTION FRACTION DECREASED
     Dosage: 1 DOSAGE FORM
     Route: 048
     Dates: start: 20161005
  21. TRASTUZUMAB. [Suspect]
     Active Substance: TRASTUZUMAB
     Indication: HER2 POSITIVE BREAST CANCER
     Dosage: 525 MILLIGRAM, Q3W (LOADING DOSE)
     Route: 041
     Dates: start: 20160510, end: 20160510
  22. DOCETAXEL. [Suspect]
     Active Substance: DOCETAXEL
     Indication: BREAST CANCER METASTATIC
     Dosage: 130 MILLIGRAM, Q3W
     Route: 042
     Dates: start: 20160511, end: 20160808
  23. PERTUZUMAB. [Suspect]
     Active Substance: PERTUZUMAB
     Dosage: 420 MILLIGRAM, Q3W
     Route: 042
     Dates: start: 20160606
  24. METOCLOPRAMIDE. [Concomitant]
     Active Substance: METOCLOPRAMIDE
     Indication: PRODUCT USED FOR UNKNOWN INDICATION
     Dosage: 10 MILLIGRAM
     Route: 048
     Dates: start: 20160511, end: 20160830
  25. SEVREDOL [Concomitant]
     Active Substance: MORPHINE
     Dosage: UNK
  26. CODEINE PHOSPHATE [Concomitant]
     Active Substance: CODEINE PHOSPHATE
     Indication: PRODUCT USED FOR UNKNOWN INDICATION
     Dosage: 60 MILLIGRAM
     Route: 048
     Dates: start: 20161101, end: 20161101
  27. DOMPERIDONE [Concomitant]
     Active Substance: DOMPERIDONE
     Dosage: UNK
     Route: 065
     Dates: start: 20191211
  28. TRASTUZUMAB. [Suspect]
     Active Substance: TRASTUZUMAB
     Dosage: 388.5 MILLIGRAM
     Route: 042
     Dates: start: 20160606, end: 20160606
  29. TRASTUZUMAB. [Suspect]
     Active Substance: TRASTUZUMAB
     Dosage: 336 MILLIGRAM, Q3W
     Route: 042
     Dates: start: 20170724
  30. PERTUZUMAB. [Suspect]
     Active Substance: PERTUZUMAB
     Dosage: 420 MILLIGRAM, Q3W
     Route: 042
     Dates: start: 20180606
  31. NERATINIB [Suspect]
     Active Substance: NERATINIB
     Dosage: 336 MILLIGRAM, Q3W
     Route: 042
     Dates: start: 20180925, end: 20200922
  32. SEVREDOL [Concomitant]
     Active Substance: MORPHINE
     Indication: PRODUCT USED FOR UNKNOWN INDICATION
     Dosage: 10 MILLIGRAM, QD
     Route: 048
     Dates: start: 20161101, end: 20161102
  33. TRASTUZUMAB. [Suspect]
     Active Substance: TRASTUZUMAB
     Dosage: 367.5 MILLIGRAM, Q3W
     Route: 042
     Dates: start: 20160920, end: 20170110
  34. TRASTUZUMAB. [Suspect]
     Active Substance: TRASTUZUMAB
     Dosage: 525 MILLIGRAM, Q3W (LOADING DOSE)
     Route: 041
     Dates: start: 20160510, end: 20160510
  35. TRASTUZUMAB. [Suspect]
     Active Substance: TRASTUZUMAB
     Dosage: 336 MILLIGRAM, Q3W
     Route: 042
     Dates: start: 20180925, end: 20200922
  36. TRASTUZUMAB. [Suspect]
     Active Substance: TRASTUZUMAB
     Dosage: 378 MILLIGRAM, Q3W (378 MG, Q3W )
     Route: 042
     Dates: start: 20201013
  37. CYCLIZINE [Concomitant]
     Active Substance: CYCLIZINE
     Indication: PRODUCT USED FOR UNKNOWN INDICATION
     Dosage: 50 MILLIGRAM
     Route: 048
     Dates: start: 20160627, end: 20160830
  38. IRON [Concomitant]
     Active Substance: IRON
     Dosage: UNK
     Route: 048
     Dates: start: 20190612
  39. ANASTROZOLE. [Suspect]
     Active Substance: ANASTROZOLE
     Indication: HER2 POSITIVE BREAST CANCER
     Dosage: 1 GRAM, QD
     Route: 048
     Dates: start: 20170127
  40. TRASTUZUMAB. [Suspect]
     Active Substance: TRASTUZUMAB
     Dosage: 388.5 MILLIGRAM, Q3W
     Route: 042
     Dates: start: 20160606, end: 20160606
  41. TRASTUZUMAB. [Suspect]
     Active Substance: TRASTUZUMAB
     Dosage: 378 MILLIGRAM
     Route: 042
     Dates: start: 20160627, end: 20160627
  42. PERTUZUMAB. [Suspect]
     Active Substance: PERTUZUMAB
     Dosage: 840 MILLIGRAM (LOADING DOSE)
     Route: 042
     Dates: start: 20160510, end: 20160510
  43. CHLORPHENAMINE [Concomitant]
     Active Substance: CHLORPHENIRAMINE MALEATE
     Indication: PRODUCT USED FOR UNKNOWN INDICATION
     Dosage: 4 MILLIGRAM
     Route: 048
     Dates: start: 20160627, end: 20160830
  44. TRASTUZUMAB. [Suspect]
     Active Substance: TRASTUZUMAB
     Dosage: 388.5 MILLIGRAM, Q3W
     Route: 042
     Dates: start: 20160718, end: 20160830
  45. TRASTUZUMAB. [Suspect]
     Active Substance: TRASTUZUMAB
     Dosage: 357 MILLIGRAM, Q3W
     Route: 042
     Dates: start: 20170201, end: 20170426
  46. TRASTUZUMAB. [Suspect]
     Active Substance: TRASTUZUMAB
     Dosage: 336 MILLIGRAM, Q3W
     Route: 042
     Dates: start: 20170724, end: 20180904
  47. DEXAMETHASONE. [Concomitant]
     Active Substance: DEXAMETHASONE
     Indication: PRODUCT USED FOR UNKNOWN INDICATION
     Dosage: 8 MILLIGRAM
     Route: 048
     Dates: start: 20160511, end: 20160830
  48. RAMIPRIL. [Concomitant]
     Active Substance: RAMIPRIL
     Dosage: 1.25 MILLIGRAM, QD
     Route: 048
     Dates: start: 20190102

REACTIONS (9)
  - Lacrimation increased [Recovered/Resolved]
  - Off label use [Unknown]
  - Intentional product use issue [Unknown]
  - Neutropenia [Recovered/Resolved]
  - Haemoglobin decreased [Recovered/Resolved]
  - Rhinorrhoea [Recovered/Resolved]
  - Ejection fraction decreased [Not Recovered/Not Resolved]
  - Lower respiratory tract infection [Recovered/Resolved]
  - Anaemia [Recovered/Resolved]

NARRATIVE: CASE EVENT DATE: 20160715
